FAERS Safety Report 5849446-5 (Version None)
Quarter: 2008Q3

REPORT INFORMATION
  Report Type: 
  Country: None (occurrence: None)
  Receive Date: 20080819
  Receipt Date: 20080814
  Transmission Date: 20090109
  Serious: Yes (Hospitalization, Other)
  Sender: FDA-Public Use
  Company Number: FR-BRISTOL-MYERS SQUIBB COMPANY-13369350

PATIENT
  Age: 45 Year
  Sex: Female
  Weight: 56 kg

DRUGS (7)
  1. SUSTIVA [Suspect]
     Indication: HIV INFECTION
     Dosage: STOPPED  ON 20SEP04 AND RESTARTED ON 7MAR05-21JAN06; 11DEC06-ONGOING
     Route: 048
     Dates: start: 19990901
  2. VIDEX [Suspect]
     Dates: start: 19990901, end: 20030201
  3. SAQUINAVIR [Suspect]
  4. RITONAVIR [Suspect]
  5. VIRAMUNE [Concomitant]
     Indication: HIV INFECTION
     Dates: start: 20060121, end: 20060911
  6. EPIVER [Concomitant]
     Indication: HIV INFECTION
  7. KALETRA [Concomitant]
     Indication: HIV INFECTION

REACTIONS (8)
  - AMNESIA [None]
  - CONFUSIONAL STATE [None]
  - DELUSION [None]
  - HALLUCINATION [None]
  - HEPATIC CIRRHOSIS [None]
  - OPTIC NEURITIS [None]
  - SOMNOLENCE [None]
  - VITAMIN B1 DEFICIENCY [None]
